FAERS Safety Report 14616221 (Version 1)
Quarter: 2018Q1

REPORT INFORMATION
  Report Type: Spontaneous
  Country: US (occurrence: US)
  Receive Date: 20180309
  Receipt Date: 20180309
  Transmission Date: 20180509
  Serious: Yes (Death)
  Sender: FDA-Public Use
  Company Number: US-JNJFOC-20180301019

PATIENT
  Age: 24 Month
  Sex: Female
  Weight: 14.52 kg

DRUGS (1)
  1. CHILDRENS BENADRYL ALLERGY [Suspect]
     Active Substance: DIPHENHYDRAMINE HYDROCHLORIDE
     Indication: SLEEP DISORDER THERAPY
     Route: 065
     Dates: start: 20170220, end: 20170223

REACTIONS (6)
  - Drug administered to patient of inappropriate age [Fatal]
  - Brain oedema [Fatal]
  - Psychomotor hyperactivity [Fatal]
  - Product use in unapproved indication [Fatal]
  - Irritability [Fatal]
  - Toxicity to various agents [Fatal]

NARRATIVE: CASE EVENT DATE: 201702
